FAERS Safety Report 4384778-1 (Version None)
Quarter: 2004Q2

REPORT INFORMATION
  Report Type: 
  Country: None (occurrence: None)
  Receive Date: 20040621
  Receipt Date: 20040609
  Transmission Date: 20050107
  Serious: Yes (Other)
  Sender: FDA-Public Use
  Company Number: HQWYE463615JUN04

PATIENT

DRUGS (1)
  1. MYLOTARG [Suspect]
     Indication: ACUTE MYELOID LEUKAEMIA
     Dosage: 9 MG/M^2 GIVEN ON DAY 5; REPEATED ON DAY 21 OR LATER PER THE PATIENT'S CLINICAL STATUS
     Route: 042

REACTIONS (1)
  - HYPERBILIRUBINAEMIA [None]
